FAERS Safety Report 17829691 (Version 1)
Quarter: 2020Q2

REPORT INFORMATION
  Report Type: Spontaneous
  Country: GB (occurrence: GB)
  Receive Date: 20200527
  Receipt Date: 20200527
  Transmission Date: 20200714
  Serious: Yes (Life-Threatening)
  Sender: FDA-Public Use
  Company Number: GB-PFIZER INC-2020205667

PATIENT
  Age: 87 Year

DRUGS (13)
  1. GENTAMICIN SULFATE. [Suspect]
     Active Substance: GENTAMICIN SULFATE
     Indication: BILIARY SEPSIS
     Dosage: 280 MG,  UNK
     Dates: start: 20190912
  2. SPIRONOLACTONE. [Suspect]
     Active Substance: SPIRONOLACTONE
     Indication: CARDIAC FAILURE
     Dosage: 25 MG, 1X/DAY MORNING
     Dates: start: 20190916
  3. BETAHISTINE [Concomitant]
     Active Substance: BETAHISTINE
     Dosage: 24 MG, DAILY WITH MEALS
  4. DULOXETINE. [Concomitant]
     Active Substance: DULOXETINE
     Dosage: 20 MG, DAILY MORNING
  5. FUROSEMIDE. [Suspect]
     Active Substance: FUROSEMIDE
     Indication: CARDIAC FAILURE
     Dosage: 80 MG, 1X/DAY
     Dates: start: 20120918
  6. LATANOPROST. [Concomitant]
     Active Substance: LATANOPROST
     Dosage: 2 DROP, DAILY ONE DROP TO BE USED AT NIGHT (BOTH EYES). 50UG/ML
  7. PARACETAMOL [Concomitant]
     Active Substance: ACETAMINOPHEN
     Dosage: TWO TO BE TAKEN EVERY 4-6 HOURS UP TO FOURTIMES A DAY
  8. FOSTAIR [Concomitant]
     Active Substance: BECLOMETHASONE\FORMOTEROL
     Dosage: 4 DF, DAILY100MICROGRAMS/DOSE / 6MICROGRAMS/DOSE
     Route: 055
  9. GENTAMICIN SULFATE. [Suspect]
     Active Substance: GENTAMICIN SULFATE
     Dosage: 560 MG, DAILY
     Dates: start: 20190914, end: 20190916
  10. LINAGLIPTIN [Concomitant]
     Active Substance: LINAGLIPTIN
     Dosage: 5 MG, DAILY
  11. OMEPRAZOLE. [Concomitant]
     Active Substance: OMEPRAZOLE
     Dosage: 40 MG, DAILY
  12. SALAMOL EASI-BREATHE [Concomitant]
     Active Substance: ALBUTEROL
     Dosage: AS NECESSARY EASI-BREATHE INHALER ONE OR TWO PUFFS WHENREQUIRED - PT HAS METERED DOSE IHALER
  13. CALCICHEW D3 [Concomitant]
     Active Substance: CALCIUM\CHOLECALCIFEROL
     Dosage: 2 DF, DAILY

REACTIONS (3)
  - Antibiotic level above therapeutic [Unknown]
  - Inappropriate schedule of product administration [Unknown]
  - Acute kidney injury [Recovered/Resolved]

NARRATIVE: CASE EVENT DATE: 201909
